FAERS Safety Report 24307041 (Version 4)
Quarter: 2024Q4

REPORT INFORMATION
  Report Type: Spontaneous
  Country: JP (occurrence: JP)
  Receive Date: 20240911
  Receipt Date: 20241008
  Transmission Date: 20250115
  Serious: Yes (Other)
  Sender: BAYER
  Company Number: JP-BAYER-2024A128945

PATIENT
  Sex: Female

DRUGS (1)
  1. MIRENA [Suspect]
     Active Substance: LEVONORGESTREL
     Dosage: 20?G/DAY
     Route: 015
     Dates: start: 2019

REACTIONS (5)
  - Device breakage [None]
  - Complication of device removal [None]
  - Intermenstrual bleeding [None]
  - Procedural pain [None]
  - Device difficult to use [None]
